FAERS Safety Report 24127140 (Version 1)
Quarter: 2024Q3

REPORT INFORMATION
  Report Type: Report from Study
  Country: US (occurrence: US)
  Receive Date: 20240723
  Receipt Date: 20240723
  Transmission Date: 20241016
  Serious: No
  Sender: VANDA PHARMACEUTICALS
  Company Number: US-VANDA PHARMACEUTICALS, INC-2024TASUS007199

PATIENT
  Sex: Female
  Weight: 101.59 kg

DRUGS (1)
  1. HETLIOZ [Suspect]
     Active Substance: TASIMELTEON
     Indication: Non-24-hour sleep-wake disorder
     Dosage: 20 MILLIGRAM, QHS
     Route: 048
     Dates: start: 202402

REACTIONS (7)
  - Initial insomnia [Unknown]
  - Poor quality sleep [Unknown]
  - Sleep deficit [Unknown]
  - Irritability [Unknown]
  - Malaise [Unknown]
  - Therapeutic product effect delayed [Unknown]
  - Inappropriate schedule of product administration [Unknown]
